FAERS Safety Report 9242456 (Version 1)
Quarter: 2013Q2

REPORT INFORMATION
  Report Type: Report from Study
  Country: US (occurrence: US)
  Receive Date: 20130419
  Receipt Date: 20130423
  Transmission Date: 20140414
  Serious: Yes (Death, Hospitalization, Other)
  Sender: FDA-Public Use
  Company Number: US-ABBOTT-13P-163-1077015-00

PATIENT
  Sex: Female
  Weight: 47.67 kg

DRUGS (4)
  1. HUMIRA [Suspect]
     Indication: RHEUMATOID ARTHRITIS
     Dates: start: 2008, end: 201202
  2. UNNAMED CHEMOTHERAPY DRUG [Suspect]
     Indication: LUNG NEOPLASM MALIGNANT
     Dates: start: 201202
  3. NEXIUM [Concomitant]
     Indication: PROPHYLAXIS
  4. NEXIUM [Concomitant]
     Indication: GASTRIC DISORDER

REACTIONS (13)
  - Vocal cord thickening [Recovered/Resolved]
  - Lung neoplasm malignant [Fatal]
  - Vocal cord disorder [Unknown]
  - Oxygen saturation decreased [Unknown]
  - Pulmonary embolism [Unknown]
  - Dysphonia [Recovered/Resolved]
  - Dysphagia [Recovered/Resolved]
  - Aspiration [Recovered/Resolved]
  - Nausea [Unknown]
  - Chest pain [Unknown]
  - Arrhythmia [Unknown]
  - Heart rate increased [Unknown]
  - Pulmonary mass [Not Recovered/Not Resolved]
